FAERS Safety Report 6860646-8 (Version None)
Quarter: 2010Q3

REPORT INFORMATION
  Report Type: 
  Country: None (occurrence: None)
  Receive Date: 20100716
  Receipt Date: 20100701
  Transmission Date: 20110219
  Serious: Yes (Other)
  Sender: FDA-Public Use
  Company Number: ACO_00961_2010

PATIENT
  Sex: Female
  Weight: 65.7716 kg

DRUGS (7)
  1. AMPYRA [Suspect]
     Indication: MULTIPLE SCLEROSIS
     Dosage: 10MG BID ORAL
     Route: 048
     Dates: start: 20100429, end: 20100527
  2. DEPKATOTE [Concomitant]
  3. CYMBALTA [Concomitant]
  4. KLONOPIN [Concomitant]
  5. TYSABRI [Concomitant]
  6. TIZANIDINE HCL [Concomitant]
  7. / [Concomitant]

REACTIONS (9)
  - BLINDNESS UNILATERAL [None]
  - CRYING [None]
  - EYE MOVEMENT DISORDER [None]
  - FALL [None]
  - INSOMNIA [None]
  - MULTIPLE SCLEROSIS RELAPSE [None]
  - MYOCLONUS [None]
  - PANIC ATTACK [None]
  - RESPIRATORY DISORDER [None]
